FAERS Safety Report 9554717 (Version 1)
Quarter: 2013Q3

REPORT INFORMATION
  Report Type: Spontaneous
  Country: US (occurrence: US)
  Receive Date: 20130926
  Receipt Date: 20130926
  Transmission Date: 20140515
  Serious: No
  Sender: FDA-Public Use
  Company Number: US-B.I. PHARMACEUTICALS,INC./RIDGEFIELD-2013-BI-29199BP

PATIENT
  Age: 62 Year
  Sex: Male

DRUGS (5)
  1. GILOTRIF [Suspect]
     Indication: NON-SMALL CELL LUNG CANCER
     Dosage: 40 MG
     Route: 048
     Dates: start: 20130913
  2. FENTANYL PATCH [Concomitant]
  3. WELLBUTRIN [Concomitant]
  4. TRAZODONE [Concomitant]
  5. HYDROMORPHO [Concomitant]

REACTIONS (2)
  - Nausea [Not Recovered/Not Resolved]
  - Decreased appetite [Not Recovered/Not Resolved]
